FAERS Safety Report 9910211 (Version 2)
Quarter: 2014Q2

REPORT INFORMATION
  Report Type: Spontaneous
  Country: BR (occurrence: BR)
  Receive Date: 20140219
  Receipt Date: 20140403
  Transmission Date: 20141212
  Serious: No
  Sender: FDA-Public Use
  Company Number: BR-B.I. PHARMACEUTICALS,INC./RIDGEFIELD-2014-BI-06931BR

PATIENT
  Age: 73 Year
  Sex: Female

DRUGS (4)
  1. TRAYENTA [Suspect]
     Indication: DIABETES MELLITUS
     Route: 048
  2. METFORMINA [Concomitant]
     Route: 065
  3. LEVEMIR [Concomitant]
     Route: 065
  4. CIBRATO [Concomitant]
     Route: 065

REACTIONS (3)
  - Pancreatitis [Recovered/Resolved]
  - Pancreatitis [Unknown]
  - Steatorrhoea [Recovered/Resolved]
